FAERS Safety Report 26001121 (Version 1)
Quarter: 2025Q4

REPORT INFORMATION
  Report Type: Report from Study
  Country: EG (occurrence: EG)
  Receive Date: 20251105
  Receipt Date: 20251105
  Transmission Date: 20260118
  Serious: Yes (Hospitalization, Other)
  Sender: NOVO NORDISK
  Company Number: EG-NOVOPROD-1549063

PATIENT
  Age: 14 Year
  Sex: Male
  Weight: 43 kg

DRUGS (2)
  1. BIODAL [Concomitant]
     Indication: Vitamin supplementation
     Dosage: 1 TAB/DAY AFTER LUNCH
  2. NOVORAPID [Suspect]
     Active Substance: INSULIN ASPART
     Indication: Type 1 diabetes mellitus
     Dosage: 35 IU, QD (10U AT MORNING, 15U AT MIDDAY, AND 10U AT NIGHT.)
     Route: 058

REACTIONS (4)
  - Diabetic hyperglycaemic coma [Not Recovered/Not Resolved]
  - Hypoglycaemic coma [Not Recovered/Not Resolved]
  - Hyperglycaemia [Unknown]
  - Product physical issue [Unknown]
